FAERS Safety Report 9507296 (Version 1)
Quarter: 2013Q3

REPORT INFORMATION
  Report Type: Spontaneous
  Country: NO (occurrence: NO)
  Receive Date: 20130909
  Receipt Date: 20130909
  Transmission Date: 20140515
  Serious: Yes (Hospitalization)
  Sender: FDA-Public Use
  Company Number: NO-009507513-1308NOR011458

PATIENT
  Age: 87 Year
  Sex: Female

DRUGS (12)
  1. ALENDRONATE SODIUM [Suspect]
     Route: 048
     Dates: start: 2008, end: 20130619
  2. SIMVASTATIN [Concomitant]
  3. IMOVANE [Concomitant]
  4. FURIX [Concomitant]
  5. IMDUR [Concomitant]
  6. SERETIDE [Concomitant]
     Dosage: 50/250 X 2
  7. ALBYL-E [Concomitant]
  8. NORMORIX MITE [Concomitant]
     Dosage: 25 MG/2,5 MG X 1
  9. VENTOLINE (ALBUTEROL) [Concomitant]
  10. CALCIGRAN FORTE [Concomitant]
     Dosage: 100/800 X 1
  11. LEVAXIN [Concomitant]
     Dosage: 0,1 MG X 5 PER WEEK, AND 0,5 MG X 2 PER WEEK
  12. BETOLVEX [Concomitant]

REACTIONS (1)
  - Femur fracture [Recovered/Resolved with Sequelae]
